FAERS Safety Report 8500404-1 (Version None)
Quarter: 2012Q3

REPORT INFORMATION
  Report Type: 
  Country: None (occurrence: None)
  Receive Date: 20120705
  Receipt Date: 20120705
  Transmission Date: 20120928
  Serious: Yes (Life-Threatening, Hospitalization)
  Sender: FDA-Public Use
  Company Number: None

PATIENT
  Age: 65 Year
  Sex: Male
  Weight: 75.3 kg

DRUGS (4)
  1. RIVAROXABAN [Suspect]
     Indication: DEEP VEIN THROMBOSIS
     Dosage: 10 MG EVERY DAY PO
     Route: 048
     Dates: start: 20120612, end: 20120702
  2. RIVAROXABAN [Suspect]
     Indication: THROMBOSIS PROPHYLAXIS
     Dosage: 10 MG EVERY DAY PO
     Route: 048
     Dates: start: 20120612, end: 20120702
  3. RIVAROXABAN [Suspect]
     Indication: SURGERY
     Dosage: 10 MG EVERY DAY PO
     Route: 048
     Dates: start: 20120612, end: 20120702
  4. CLOPIDOGREL [Suspect]
     Indication: CORONARY ARTERIAL STENT INSERTION
     Dosage: 75 MG EVERY DAY PO
     Route: 048
     Dates: start: 20091013, end: 20120702

REACTIONS (2)
  - GASTRIC HAEMORRHAGE [None]
  - HAEMOGLOBIN DECREASED [None]
